FAERS Safety Report 10268249 (Version 1)
Quarter: 2020Q3

REPORT INFORMATION
  Report Type: Report from Study
  Country: US (occurrence: US)
  Receive Date: 20140630
  Receipt Date: 20140630
  Transmission Date: 20201105
  Serious: Yes (Other)
  Sender: FDA-Public Use
  Company Number: US-CELGENEUS-163-21880-14063595

PATIENT
  Age: 67 Year
  Sex: Male
  Weight: 66.9 kg

DRUGS (10)
  1. CEDIRANIB. [Suspect]
     Active Substance: CEDIRANIB
     Dosage: 20 MILLIGRAM
     Route: 048
     Dates: start: 20130820
  2. CEDIRANIB. [Suspect]
     Active Substance: CEDIRANIB
     Dosage: 30 MILLIGRAM
     Route: 048
     Dates: start: 20130508, end: 20130604
  3. REVLIMID [Suspect]
     Active Substance: LENALIDOMIDE
     Indication: PAPILLARY THYROID CANCER
     Dosage: 15 MILLIGRAM
     Route: 048
     Dates: start: 20130410, end: 20130503
  4. REVLIMID [Suspect]
     Active Substance: LENALIDOMIDE
     Dosage: 10 MILLIGRAM
     Route: 048
     Dates: start: 20130619, end: 20130716
  5. CEDIRANIB. [Suspect]
     Active Substance: CEDIRANIB
     Dosage: 30 MILLIGRAM
     Route: 048
     Dates: start: 20130619, end: 20130717
  6. REVLIMID [Suspect]
     Active Substance: LENALIDOMIDE
     Dosage: 10 MILLIGRAM
     Route: 048
     Dates: end: 20130806
  7. CEDIRANIB. [Suspect]
     Active Substance: CEDIRANIB
     Dosage: 30 MILLIGRAM
     Route: 048
     Dates: end: 20130813
  8. CEDIRANIB. [Suspect]
     Active Substance: CEDIRANIB
     Indication: PAPILLARY THYROID CANCER
     Dosage: 30 MILLIGRAM
     Route: 048
     Dates: start: 20130410, end: 20130503
  9. REVLIMID [Suspect]
     Active Substance: LENALIDOMIDE
     Dosage: 15 MILLIGRAM
     Route: 048
     Dates: start: 20130508, end: 20130528
  10. REVLIMID [Suspect]
     Active Substance: LENALIDOMIDE
     Dosage: 5 MILLIGRAM
     Route: 048
     Dates: start: 20130820

REACTIONS (6)
  - Hypoalbuminaemia [Recovering/Resolving]
  - Proteinuria [Recovering/Resolving]
  - Hypoalbuminaemia [Recovering/Resolving]
  - Neutrophil count decreased [Not Recovered/Not Resolved]
  - Proteinuria [Recovering/Resolving]
  - Hyponatraemia [Recovering/Resolving]

NARRATIVE: CASE EVENT DATE: 20130508
